FAERS Safety Report 5045772-0 (Version None)
Quarter: 2006Q3

REPORT INFORMATION
  Report Type: 
  Country: None (occurrence: None)
  Receive Date: 20060710
  Receipt Date: 20050331
  Transmission Date: 20061208
  Serious: Yes (Hospitalization, Other)
  Sender: FDA-Public Use
  Company Number: PHNU2005DE01487

PATIENT
  Age: 61 Year
  Sex: Female

DRUGS (6)
  1. TAMOXIFEN [Concomitant]
     Dosage: 20 MG, QD
     Route: 048
     Dates: start: 19991101, end: 20030901
  2. LETROZOLE [Concomitant]
     Route: 065
     Dates: start: 20030901
  3. ZOMETA [Suspect]
     Indication: METASTASES TO BONE
     Dosage: 4 MG, QMO
     Route: 042
     Dates: start: 20020701, end: 20050419
  4. AREDIA [Suspect]
     Indication: BREAST CANCER METASTATIC
     Dosage: 90 MG, QMO
     Route: 042
     Dates: start: 19991101, end: 20020701
  5. RADIOTHERAPY [Concomitant]
     Indication: BREAST CANCER FEMALE
     Route: 061
     Dates: start: 19990901
  6. BONDRONAT [Concomitant]
     Dosage: 6 MG, TIW
     Route: 065
     Dates: start: 20050531

REACTIONS (10)
  - ANAESTHESIA [None]
  - BONE TRIMMING [None]
  - DENTAL TREATMENT [None]
  - GINGIVAL RECESSION [None]
  - GINGIVITIS [None]
  - INFLAMMATION [None]
  - OSTEOMYELITIS [None]
  - OSTEONECROSIS [None]
  - PLASTIC SURGERY [None]
  - TOOTH EXTRACTION [None]
